FAERS Safety Report 26058897 (Version 1)
Quarter: 2025Q4

REPORT INFORMATION
  Report Type: Spontaneous
  Country: US (occurrence: None)
  Receive Date: 20251117
  Receipt Date: 20251117
  Transmission Date: 20260117
  Serious: Yes (Hospitalization)
  Sender: FDA-CTU
  Company Number: None

PATIENT
  Age: 64 Year
  Sex: Female
  Weight: 74.25 kg

DRUGS (9)
  1. SACITUZUMAB GOVITECAN [Suspect]
     Active Substance: SACITUZUMAB GOVITECAN
     Indication: Investigation
     Dosage: OTHER FREQUENCY : D1 AND D8/21 DAY;?
     Route: 042
     Dates: start: 20251022, end: 20251029
  2. CISPLATIN [Suspect]
     Active Substance: CISPLATIN
     Indication: Investigation
     Dosage: OTHER FREQUENCY : D1 AND D8/21 DAYS;?
     Route: 042
     Dates: start: 20251022, end: 20251029
  3. LACTATED RINGERS SOLUTION [Concomitant]
     Active Substance: CALCIUM CHLORIDE\POTASSIUM CHLORIDE\SODIUM CHLORIDE\SODIUM LACTATE
  4. CEFEPIME [Concomitant]
     Active Substance: CEFEPIME HYDROCHLORIDE
  5. POTASSIUM CHLORIDE [Concomitant]
     Active Substance: POTASSIUM CHLORIDE
  6. ROCEPHIN [Concomitant]
     Active Substance: CEFTRIAXONE SODIUM
  7. Filgrastim (Zarxio) [Concomitant]
  8. Phenazopyridine (Pyridium) [Concomitant]
  9. ACETAMINOPHEN\OXYCODONE HYDROCHLORIDE [Concomitant]
     Active Substance: ACETAMINOPHEN\OXYCODONE HYDROCHLORIDE

REACTIONS (11)
  - Ureteral stent insertion [None]
  - Dizziness [None]
  - Asthenia [None]
  - Fall [None]
  - Presyncope [None]
  - Blood pressure decreased [None]
  - Pyelonephritis [None]
  - Tachycardia [None]
  - Hydroureter [None]
  - Hydronephrosis [None]
  - Klebsiella test positive [None]

NARRATIVE: CASE EVENT DATE: 20251103
